FAERS Safety Report 14928783 (Version 1)
Quarter: 2018Q2

REPORT INFORMATION
  Report Type: Spontaneous
  Country: US (occurrence: US)
  Receive Date: 20180523
  Receipt Date: 20180523
  Transmission Date: 20180711
  Serious: Yes (Hospitalization, Other)
  Sender: FDA-Public Use
  Company Number: US-GLAXOSMITHKLINE-US2018GSK091919

PATIENT
  Age: 38 Year
  Sex: Male

DRUGS (3)
  1. AUGMENTIN [Suspect]
     Active Substance: AMOXICILLIN\CLAVULANATE POTASSIUM
  2. AZITHROMYCIN ANHYDROUS. [Suspect]
     Active Substance: AZITHROMYCIN ANHYDROUS
  3. LAMICTAL [Suspect]
     Active Substance: LAMOTRIGINE

REACTIONS (9)
  - Stevens-Johnson syndrome [Unknown]
  - Respiratory failure [Unknown]
  - Dyspnoea [Unknown]
  - Rash [Unknown]
  - Influenza like illness [Unknown]
  - Petechiae [Unknown]
  - Rash vesicular [Unknown]
  - Stomatitis [Unknown]
  - Conjunctivitis [Unknown]
